FAERS Safety Report 7457541-2 (Version None)
Quarter: 2011Q1

REPORT INFORMATION
  Report Type: 
  Country: None (occurrence: None)
  Receive Date: 20110302
  Receipt Date: 20101115
  Transmission Date: 20110831
  Serious: Yes (Other)
  Sender: FDA-Public Use
  Company Number: 163-21880-10111933

PATIENT
  Age: 72 Year
  Sex: Male

DRUGS (2)
  1. REVLIMID [Suspect]
     Indication: MULTIPLE MYELOMA
     Dosage: 25 MG, DAILY FOR 3WKS, THEN OFF 1WK, PO, 15 MG, DAILY FOR 3WKS, THEN OFF 1WK, PO
     Route: 048
     Dates: start: 20100923
  2. REVLIMID [Suspect]
     Indication: MULTIPLE MYELOMA
     Dosage: 25 MG, DAILY FOR 3WKS, THEN OFF 1WK, PO, 15 MG, DAILY FOR 3WKS, THEN OFF 1WK, PO
     Route: 048
     Dates: start: 20101101

REACTIONS (3)
  - SINUSITIS [None]
  - CANDIDIASIS [None]
  - PANCYTOPENIA [None]
